FAERS Safety Report 23206202 (Version 2)
Quarter: 2023Q4

REPORT INFORMATION
  Report Type: Spontaneous
  Country: AT (occurrence: AT)
  Receive Date: 20231120
  Receipt Date: 20231130
  Transmission Date: 20240110
  Serious: Yes (Hospitalization)
  Sender: FDA-Public Use
  Company Number: AT-DSJP-DSE-2023-147381

PATIENT
  Sex: Female

DRUGS (8)
  1. ENHERTU [Suspect]
     Active Substance: FAM-TRASTUZUMAB DERUXTECAN-NXKI
     Indication: HER2 negative breast cancer
     Dosage: 356.4 MG, CYCLIC, (5.4MG/KG BODY WEIGHT)
     Route: 065
     Dates: start: 20230602
  2. ENHERTU [Suspect]
     Active Substance: FAM-TRASTUZUMAB DERUXTECAN-NXKI
     Dosage: 356.4 MG/KG
     Route: 065
     Dates: start: 20230821, end: 20230821
  3. ENHERTU [Suspect]
     Active Substance: FAM-TRASTUZUMAB DERUXTECAN-NXKI
     Dosage: 259.2 MG, CYCLIC 75% (4.05MG/KG BODY WEIGHT)
     Route: 065
     Dates: start: 20230912, end: 20230912
  4. ENHERTU [Suspect]
     Active Substance: FAM-TRASTUZUMAB DERUXTECAN-NXKI
     Dosage: 259.2 MG, CYCLIC, 75% (4.05MG/KG BODY WEIGHT)
     Route: 065
     Dates: start: 202310
  5. APREPITANT [Concomitant]
     Active Substance: APREPITANT
     Indication: Product used for unknown indication
     Dosage: 125 MG, QD (1-0-0)
     Route: 048
  6. APREPITANT [Concomitant]
     Active Substance: APREPITANT
     Dosage: 80 MG, QD (1-0-0)
     Route: 048
  7. ONDANSETRON [Concomitant]
     Active Substance: ONDANSETRON
     Indication: Product used for unknown indication
     Dosage: 8 MG, BID (1-0-1)
     Route: 048
  8. DEXAMETHASONE [Concomitant]
     Active Substance: DEXAMETHASONE
     Indication: Product used for unknown indication
     Dosage: 4 MG, QD (1-0-0)
     Route: 048

REACTIONS (9)
  - General physical health deterioration [Unknown]
  - Dizziness [Unknown]
  - Nausea [Unknown]
  - Vomiting [Unknown]
  - Emotional distress [Unknown]
  - Asthenia [Unknown]
  - Malaise [Unknown]
  - Incorrect dose administered [Not Recovered/Not Resolved]
  - Intentional product use issue [Not Recovered/Not Resolved]

NARRATIVE: CASE EVENT DATE: 20230601
